FAERS Safety Report 9011983 (Version 1)
Quarter: 2012Q4

REPORT INFORMATION
  Report Type: Spontaneous
  Country: AU (occurrence: None)
  Receive Date: 20121228
  Receipt Date: 20121228
  Transmission Date: 20130627
  Serious: Yes (Hospitalization)
  Sender: FDA-Public Use
  Company Number: CIP-2012-00446

PATIENT
  Age: 23 Year
  Sex: Female

DRUGS (4)
  1. RISPERIDONE [Suspect]
     Indication: PARANOID SCHIZOPHRENIA
     Route: 048
     Dates: start: 200801
  2. RISPERIDONE [Suspect]
     Indication: PARANOID SCHIZOPHRENIA
  3. BIPERIDEN (BIPERIDEN) [Concomitant]
  4. LAMOTRIGINE (LAMOTRIGINE) [Concomitant]

REACTIONS (4)
  - Tremor [None]
  - Dystonia [None]
  - Dyskinesia [None]
  - Pleurothotonus [None]
